FAERS Safety Report 12014983 (Version 1)
Quarter: 2016Q1

REPORT INFORMATION
  Report Type: Spontaneous
  Country: US (occurrence: US)
  Receive Date: 20160205
  Receipt Date: 20160205
  Transmission Date: 20160526
  Serious: No
  Sender: FDA-Public Use
  Company Number: US-AMGEN-USASP2015016059

PATIENT

DRUGS (6)
  1. FORTEO [Concomitant]
     Active Substance: TERIPARATIDE
     Indication: OSTEOPOROSIS
     Dosage: UNK UNK, DAILY
     Dates: start: 20080214, end: 20101015
  2. HERCEPTIN [Concomitant]
     Active Substance: TRASTUZUMAB
     Indication: LOBULAR BREAST CARCINOMA IN SITU
     Dosage: UNK
     Dates: start: 200510, end: 200610
  3. ADRIAMYCIN [Concomitant]
     Active Substance: DOXORUBICIN HYDROCHLORIDE
     Indication: LOBULAR BREAST CARCINOMA IN SITU
     Dosage: UNK
     Dates: start: 200508, end: 200510
  4. CYCLOPHOSPHAMIDE. [Concomitant]
     Active Substance: CYCLOPHOSPHAMIDE
     Indication: LOBULAR BREAST CARCINOMA IN SITU
     Dosage: UNK
     Dates: start: 200508, end: 200510
  5. NEULASTA [Suspect]
     Active Substance: PEGFILGRASTIM
     Indication: PRODUCT USED FOR UNKNOWN INDICATION
     Dosage: UNK
     Route: 065
  6. ARIMIDEX [Concomitant]
     Active Substance: ANASTROZOLE
     Dosage: UNK

REACTIONS (1)
  - Bone pain [Recovering/Resolving]
